FAERS Safety Report 6258823-2 (Version None)
Quarter: 2009Q3

REPORT INFORMATION
  Report Type: 
  Country: None (occurrence: None)
  Receive Date: 20090707
  Receipt Date: 20090623
  Transmission Date: 20100115
  Serious: Yes (Life-Threatening, Hospitalization, Other)
  Sender: FDA-Public Use
  Company Number: FR-ROCHE-631368

PATIENT
  Sex: Male
  Weight: 73 kg

DRUGS (10)
  1. PEGASYS [Suspect]
     Indication: HEPATITIS C
     Route: 058
     Dates: start: 20090205
  2. COPEGUS [Suspect]
     Indication: HEPATITIS C
     Route: 048
     Dates: start: 20090205
  3. NEORECORMON [Suspect]
     Dosage: DOSE REPORTED AS 30,000 IU.
     Route: 065
     Dates: start: 20090224, end: 20090317
  4. CLONAZEPAM [Concomitant]
  5. SERESTA [Concomitant]
  6. MEPRONIZINE [Concomitant]
  7. ZOLOFT [Concomitant]
  8. LEPTICUR [Concomitant]
  9. LOXAPAC [Concomitant]
  10. METHADONE [Concomitant]

REACTIONS (4)
  - ANAEMIA [None]
  - DEEP VEIN THROMBOSIS [None]
  - FATIGUE [None]
  - MYALGIA [None]
